FAERS Safety Report 24293313 (Version 1)
Quarter: 2024Q3

REPORT INFORMATION
  Report Type: Spontaneous
  Country: US (occurrence: None)
  Receive Date: 20240906
  Receipt Date: 20240906
  Transmission Date: 20241016
  Serious: No
  Sender: DOMPE FARMACEUTICI
  Company Number: US-FARMAPROD-202308-202312-3670

PATIENT
  Sex: Female
  Weight: 43.09 kg

DRUGS (31)
  1. OXERVATE [Suspect]
     Active Substance: CENEGERMIN-BKBJ
     Indication: Neurotrophic keratopathy
     Route: 047
     Dates: start: 20231130
  2. TORSEMIDE [Concomitant]
     Active Substance: TORSEMIDE
  3. GAS-X [Concomitant]
     Active Substance: DIMETHICONE
  4. KLOR-CON [Concomitant]
     Active Substance: POTASSIUM CHLORIDE
     Dosage: PACKET
  5. OXYGEN [Concomitant]
     Active Substance: OXYGEN
  6. METOLAZONE [Concomitant]
     Active Substance: METOLAZONE
  7. DIETARY SUPPLEMENT [Concomitant]
     Active Substance: DIETARY SUPPLEMENT
     Dosage: 250-30-15
  8. DICLOFENAC SODIUM [Concomitant]
     Active Substance: DICLOFENAC\DICLOFENAC SODIUM
  9. LOPERAMIDE [Concomitant]
     Active Substance: LOPERAMIDE
  10. OXYCODONE HYDROCHLORIDE [Concomitant]
     Active Substance: OXYCODONE HYDROCHLORIDE
     Dosage: CONCENTRATE, ORAL
  11. PREGABALIN [Concomitant]
     Active Substance: PREGABALIN
  12. SENNA-DOCUSATE SODIUM [Concomitant]
     Dosage: 8.6MG-50MG
  13. DOCUSOL [Concomitant]
     Active Substance: DOCUSATE SODIUM
  14. BISACODYL [Concomitant]
     Active Substance: BISACODYL
     Dosage: SUPPOSITORY, RECTAL
  15. ELIQUIS [Concomitant]
     Active Substance: APIXABAN
  16. ERYTHROMYCIN [Concomitant]
     Active Substance: ERYTHROMYCIN
  17. REFRESH P.M. [Concomitant]
     Active Substance: MINERAL OIL\PETROLATUM
     Dosage: 42.5-57.3%
  18. CREON [Concomitant]
     Active Substance: PANCRELIPASE AMYLASE\PANCRELIPASE LIPASE\PANCRELIPASE PROTEASE
     Dosage: 12K-38K-60
  19. SPIRONOLACTONE [Concomitant]
     Active Substance: SPIRONOLACTONE
  20. SYSTANE (HYPROMELLOSE 2910 (4000 MPA.S)) [Concomitant]
     Active Substance: HYPROMELLOSE 2910 (4000 MPA.S)
     Dosage: 0.3 %-0.4%
  21. CLOBETASOL PROPIONATE [Concomitant]
     Active Substance: CLOBETASOL PROPIONATE
  22. HYOSCYAMINE SULFATE [Concomitant]
     Active Substance: HYOSCYAMINE SULFATE
  23. ACETAMINOPHEN [Concomitant]
     Active Substance: ACETAMINOPHEN
  24. FLUTICASONE PROPIONATE [Concomitant]
     Active Substance: FLUTICASONE PROPIONATE
  25. VALACYCLOVIR [Concomitant]
     Active Substance: VALACYCLOVIR HYDROCHLORIDE
  26. LORAZEPAM [Concomitant]
     Active Substance: LORAZEPAM
     Dosage: ORAL CONCENTRATE
  27. SOAANZ [Concomitant]
     Active Substance: TORSEMIDE
  28. ZENPEP [Concomitant]
     Active Substance: PANCRELIPASE AMYLASE\PANCRELIPASE LIPASE\PANCRELIPASE PROTEASE
     Dosage: 15-47-63K
  29. POLYETHYLENE GLYCOL [Concomitant]
     Active Substance: POLYETHYLENE GLYCOL
     Dosage: 3350
  30. SARNA ORIGINAL [Concomitant]
     Dosage: 0.5 %-0.5%
  31. SIMETHICONE (DIMETHICONE) [Concomitant]
     Active Substance: DIMETHICONE

REACTIONS (1)
  - Wrong technique in product usage process [Unknown]
